FAERS Safety Report 4312067-X (Version None)
Quarter: 2004Q1

REPORT INFORMATION
  Report Type: 
  Country: None (occurrence: None)
  Receive Date: 20040303
  Receipt Date: 20040223
  Transmission Date: 20041129
  Serious: Yes (Death)
  Sender: FDA-Public Use
  Company Number: DEWYE596523FEB04

PATIENT
  Age: 29 Year
  Sex: Female

DRUGS (2)
  1. VENLAFAXINE HCL [Suspect]
  2. ALCOHOL (EHANOL,     , 0) [Suspect]

REACTIONS (1)
  - ALCOHOL POISONING [None]
